FAERS Safety Report 4976376-3 (Version None)
Quarter: 2006Q2

REPORT INFORMATION
  Report Type: 
  Country: None (occurrence: None)
  Receive Date: 20060412
  Receipt Date: 20060327
  Transmission Date: 20061013
  Serious: No
  Sender: FDA-Public Use
  Company Number: US017245

PATIENT
  Age: 18 Month
  Sex: Female

DRUGS (1)
  1. ACTIQ [Suspect]
     Dates: start: 20041021, end: 20041021

REACTIONS (5)
  - ACCIDENTAL DRUG INTAKE BY CHILD [None]
  - COORDINATION ABNORMAL [None]
  - LETHARGY [None]
  - REFUSAL OF TREATMENT BY RELATIVE [None]
  - SOMNOLENCE [None]
